FAERS Safety Report 23657596 (Version 1)
Quarter: 2024Q1

REPORT INFORMATION
  Report Type: Other
  Country: US (occurrence: US)
  Receive Date: 20240321
  Receipt Date: 20240321
  Transmission Date: 20240410
  Serious: Yes (Other)
  Sender: FDA-Public Use
  Company Number: US-Marksans Pharma Limited-2154577

PATIENT
  Age: 28 Year

DRUGS (1)
  1. GABAPENTIN [Suspect]
     Active Substance: GABAPENTIN
     Route: 065

REACTIONS (6)
  - Road traffic accident [Unknown]
  - Impaired driving ability [Unknown]
  - Amnesia [Unknown]
  - Coordination abnormal [Unknown]
  - Disturbance in attention [Unknown]
  - Bradykinesia [Unknown]
